FAERS Safety Report 9524226 (Version 1)
Quarter: 2013Q1

REPORT INFORMATION
  Report Type: Spontaneous
  Country: US (occurrence: None)
  Receive Date: 20130305
  Receipt Date: 20130305
  Transmission Date: 20140127
  Serious: Yes (Other)
  Sender: FDA-Public Use
  Company Number: 163-21880-12031071

PATIENT
  Age: 60 Year
  Sex: Female

DRUGS (17)
  1. REVLIMID (LENALIDOMIDE) (25 MILLIGRAM, CAPSULES) [Suspect]
     Indication: PLASMA CELL MYELOMA
     Dosage: 25 MG, 1 IN 1 D, PO
     Route: 048
     Dates: start: 20101227, end: 201111
  2. ASA (ACETYLSALICYLIC ACID) (UNKNOWN) [Concomitant]
  3. ATIVAN (LORAZEPAM) (UNKNOWN) [Concomitant]
  4. CLARITIN (LORATADINE) (IUNKNOWN) [Concomitant]
  5. CYMBALTA (DULOXETINE HYDROCHLORIDE) (UNKNOWN) [Concomitant]
  6. DETROL LA (TOLTERODINE L-TARTRATE) (UNKNOWN) [Concomitant]
  7. FLONASE (FLUTICASONE PROPIONATE) (UNKOWN) [Concomitant]
  8. HYDROCHLOROTHIAZIDE (HYDROCHLOROTHIAZIDE) (UNKNOWN) [Concomitant]
  9. IMITREX (SUMATRIPTAN) (UNKNOWN) [Concomitant]
  10. JANUMET (JANUMET) (UNKNOWN) [Concomitant]
  11. KLONOPIN (CLONAZEPAM) (UNKNOWN) [Concomitant]
  12. LORTAB (VICODIN) (UNKNOWN) [Concomitant]
  13. NEURONTIN (GABAPENTIN) (UNKNOWN) [Concomitant]
  14. PRILOSEC (OMEPRAZOLE) (UNKNOWN) [Concomitant]
  15. PROCHLORPERAZINE (PROCHLORPERAZINE) (UNKNOWN) [Concomitant]
  16. SYNTHROID (LEVOTHYROXINE SODIUM) (UNKNOWN) [Concomitant]
  17. WELLBUTRIN (BUPROPION HYDROCHLORIDE) (UNKNOWN) [Concomitant]

REACTIONS (1)
  - Rash [None]
